FAERS Safety Report 6491132-5 (Version None)
Quarter: 2009Q4

REPORT INFORMATION
  Report Type: 
  Country: None (occurrence: None)
  Receive Date: 20091207
  Receipt Date: 20091124
  Transmission Date: 20100525
  Serious: Yes (Disabling)
  Sender: FDA-Public Use
  Company Number: 2009AL007489

PATIENT
  Age: 89 Year
  Sex: Male

DRUGS (7)
  1. TRAMADOL HYDROCHLORIDE [Suspect]
     Indication: ARTHRALGIA
     Dosage: 100 MG;QD;PO
     Route: 048
     Dates: start: 20091005, end: 20091012
  2. SIMVASTATIN [Concomitant]
  3. CLOPIDOGREL [Concomitant]
  4. BUTRANS [Concomitant]
  5. ASPIRIN [Concomitant]
  6. CALCICHEW [Concomitant]
  7. CO-CODAMOL [Concomitant]

REACTIONS (1)
  - DELIRIUM [None]
